FAERS Safety Report 16196666 (Version 1)
Quarter: 2019Q2

REPORT INFORMATION
  Report Type: Spontaneous
  Country: CO (occurrence: CO)
  Receive Date: 20190415
  Receipt Date: 20190415
  Transmission Date: 20190711
  Serious: Yes (Other)
  Sender: FDA-Public Use
  Company Number: CO-BAYER-2019-070703

PATIENT
  Sex: Female

DRUGS (2)
  1. BETAFERON [Suspect]
     Active Substance: INTERFERON BETA-1B
     Indication: MULTIPLE SCLEROSIS
     Dosage: UNK
  2. ALEMTUZUMAB [Concomitant]
     Active Substance: ALEMTUZUMAB

REACTIONS (11)
  - Tibia fracture [None]
  - Headache [None]
  - Pain [None]
  - Memory impairment [None]
  - Pain in extremity [Not Recovered/Not Resolved]
  - Osteoporosis [None]
  - Influenza [None]
  - Product use issue [None]
  - Multiple sclerosis relapse [None]
  - Urinary tract infection [None]
  - Drug ineffective [None]
